FAERS Safety Report 4869829-X (Version None)
Quarter: 2005Q4

REPORT INFORMATION
  Report Type: 
  Country: None (occurrence: None)
  Receive Date: 20051223
  Receipt Date: 20051213
  Transmission Date: 20060501
  Serious: Yes (Death, Hospitalization)
  Sender: FDA-Public Use
  Company Number: 13166

PATIENT
  Age: 13 Year
  Sex: Female

DRUGS (7)
  1. CLOFARABINE [Suspect]
     Indication: ACUTE MYELOID LEUKAEMIA
     Dosage: 90.48 MG QD X 5 IV
     Route: 042
     Dates: start: 20031027, end: 20031031
  2. FLUCONAZOLE [Concomitant]
  3. ZANTAC [Concomitant]
  4. ATIVAN [Concomitant]
  5. OXYCODONE [Concomitant]
  6. BENADRYL [Concomitant]
  7. POTASSIUM CHLORIDE [Concomitant]

REACTIONS (12)
  - BACTERIAL SEPSIS [None]
  - BLOOD BILIRUBIN INCREASED [None]
  - BLOOD CREATININE INCREASED [None]
  - BLOOD UREA INCREASED [None]
  - CARDIO-RESPIRATORY ARREST [None]
  - DIARRHOEA [None]
  - FATIGUE [None]
  - FUNGAL SEPSIS [None]
  - HYPOTENSION [None]
  - LOSS OF CONSCIOUSNESS [None]
  - MYDRIASIS [None]
  - SOMNOLENCE [None]
